FAERS Safety Report 26107742 (Version 1)
Quarter: 2025Q4

REPORT INFORMATION
  Report Type: Spontaneous
  Country: US (occurrence: US)
  Receive Date: 20251201
  Receipt Date: 20251201
  Transmission Date: 20260118
  Serious: Yes (Other)
  Sender: BAYER HEALTHCARE PHARMACEUTICALS INC.
  Company Number: US-BAYER-2025A157706

PATIENT
  Age: 64 Year
  Sex: Female

DRUGS (1)
  1. PRECOSE [Suspect]
     Active Substance: ACARBOSE
     Indication: Hypoglycaemia
     Dosage: 25 MG
     Route: 048

REACTIONS (3)
  - Gastrointestinal disorder [None]
  - Product use in unapproved indication [None]
  - Product prescribing issue [None]
